FAERS Safety Report 6555650-3 (Version None)
Quarter: 2010Q1

REPORT INFORMATION
  Report Type: 
  Country: None (occurrence: None)
  Receive Date: 20100128
  Receipt Date: 20100114
  Transmission Date: 20100710
  Serious: Yes (Other)
  Sender: FDA-Public Use
  Company Number: PHEH2008US07001

PATIENT
  Sex: Female
  Weight: 69.841 kg

DRUGS (33)
  1. VIVELLE [Suspect]
     Dosage: 0.1MG PATCH
     Dates: start: 20020225
  2. AYGESTIN [Suspect]
     Dosage: UNK
     Dates: start: 20020225
  3. PREMARIN [Suspect]
     Dosage: 0.9MG
  4. PROVERA [Suspect]
  5. PREMPRO [Suspect]
  6. CENESTIN [Suspect]
  7. PROMETRIUM [Suspect]
     Dosage: UNK
  8. MEDROXYPROGESTERONE [Suspect]
  9. LEXAPRO [Concomitant]
     Dosage: 20MG
  10. ACTONEL [Concomitant]
     Dosage: 35MG
  11. SYNTHROID [Concomitant]
  12. COUMADIN [Concomitant]
     Dosage: 1 MG
  13. ARIMIDEX [Concomitant]
     Dosage: 1MG
  14. WELLBUTRIN SR [Concomitant]
     Dosage: 150MG BID
     Dates: start: 20020225
  15. DETROL [Concomitant]
  16. LOESTRIN 1.5/30 [Suspect]
  17. ARANESP [Concomitant]
  18. DECADRON #1 [Concomitant]
     Dosage: 8MG BID FOR 3 DAYS
     Dates: start: 20050214
  19. NEULASTA [Concomitant]
  20. LEVOXYL [Concomitant]
     Dosage: 100 MCG
  21. VIOXX [Concomitant]
     Dosage: 12.5MG
  22. ALPRAZOLAM [Concomitant]
     Dosage: .25MG
  23. AMITRIPTYLINE [Concomitant]
     Dosage: 50MG
  24. ZOLOFT [Concomitant]
     Dosage: 100MG
  25. NAPROXEN SODIUM [Concomitant]
     Dosage: 150MG
  26. PROZAC [Concomitant]
     Dosage: 20MG
  27. AMBIEN [Concomitant]
     Dosage: 10MG
  28. LEVAQUIN [Concomitant]
     Dosage: 500MG
  29. TEMAZEPAM [Concomitant]
     Dosage: 30MG
  30. NEURONTIN [Concomitant]
     Dosage: 100MG
  31. VAGIFEM [Concomitant]
     Dosage: 25MG
  32. ERYTHROMYCIN [Concomitant]
     Dosage: 250MG
  33. CLINDAMYCIN [Concomitant]
     Dosage: 150MG

REACTIONS (16)
  - ANAEMIA [None]
  - ANXIETY [None]
  - ATROPHY [None]
  - BIOPSY BREAST [None]
  - BREAST CANCER [None]
  - BREAST LUMP REMOVAL [None]
  - HORMONE LEVEL ABNORMAL [None]
  - HYPERCHOLESTEROLAEMIA [None]
  - INTERVERTEBRAL DISC PROTRUSION [None]
  - LYMPHADENECTOMY [None]
  - MAMMOGRAM ABNORMAL [None]
  - MOOD SWINGS [None]
  - NIGHT SWEATS [None]
  - NIPPLE DISORDER [None]
  - PELVIC PROLAPSE [None]
  - UTERINE PROLAPSE [None]
